FAERS Safety Report 4865331-X (Version None)
Quarter: 2005Q4

REPORT INFORMATION
  Report Type: 
  Country: None (occurrence: None)
  Receive Date: 20051223
  Receipt Date: 20051129
  Transmission Date: 20060501
  Serious: Yes (Hospitalization)
  Sender: FDA-Public Use
  Company Number: FR-AVENTIS-200513918FR

PATIENT
  Age: 73 Year
  Sex: Male

DRUGS (14)
  1. TAXOTERE [Suspect]
     Indication: PROSTATE CANCER
     Route: 042
     Dates: start: 20050609, end: 20050609
  2. RADIOTHERAPY [Suspect]
     Indication: PROSTATE CANCER
     Dates: start: 20050418, end: 20050609
  3. SKENAN [Concomitant]
  4. MORPHINE SULFATE [Concomitant]
  5. MEDROL [Concomitant]
  6. EDUCTYL [Concomitant]
  7. DECAPEPTYL - SLOW RELEASE [Concomitant]
     Dates: start: 20050301, end: 20050301
  8. CASODEX [Concomitant]
     Route: 048
     Dates: start: 20050123, end: 20050223
  9. RIVOTRIL [Concomitant]
  10. OGAST [Concomitant]
  11. UNICORDIUM [Concomitant]
  12. XANAX [Concomitant]
  13. FORLAX [Concomitant]
  14. XATRAL [Concomitant]

REACTIONS (8)
  - ANXIETY [None]
  - CYSTITIS [None]
  - DYSPHAGIA [None]
  - GENERAL PHYSICAL HEALTH DETERIORATION [None]
  - HYPOKALAEMIA [None]
  - PELVIC PAIN [None]
  - PROCTITIS [None]
  - WEIGHT DECREASED [None]
